FAERS Safety Report 22792727 (Version 3)
Quarter: 2024Q1

REPORT INFORMATION
  Report Type: Report from Study
  Country: US (occurrence: US)
  Receive Date: 20230807
  Receipt Date: 20240325
  Transmission Date: 20240410
  Serious: No
  Sender: FDA-Public Use
  Company Number: US-SANDOZ-SDZ2023US001968

PATIENT
  Age: 11 Year
  Sex: Male

DRUGS (4)
  1. OMNITROPE [Suspect]
     Active Substance: SOMATROPIN
     Indication: Hypopituitarism
     Dosage: 1.5 MG, QD
     Route: 058
     Dates: start: 20230630
  2. OMNITROPE [Suspect]
     Active Substance: SOMATROPIN
     Indication: Hypopituitarism
     Dosage: 1.5 MG, QD
     Route: 058
     Dates: start: 20230630
  3. OMNITROPE [Suspect]
     Active Substance: SOMATROPIN
     Dosage: 1.5 MG, QD
     Route: 058
     Dates: start: 20230708
  4. OMNITROPE [Suspect]
     Active Substance: SOMATROPIN
     Dosage: 1.5 MG, QD
     Route: 058
     Dates: start: 20230708

REACTIONS (4)
  - Nasopharyngitis [Unknown]
  - Discomfort [Unknown]
  - Needle issue [Unknown]
  - Wrong technique in device usage process [Unknown]

NARRATIVE: CASE EVENT DATE: 20230630
